FAERS Safety Report 5208579-7 (Version None)
Quarter: 2006Q4

REPORT INFORMATION
  Report Type: 
  Country: None (occurrence: None)
  Receive Date: 20061027
  Receipt Date: 20060815
  Transmission Date: 20070319
  Serious: Yes (Other)
  Sender: FDA-Public Use
  Company Number: HQWYE698305APR05

PATIENT
  Age: 55 Year
  Sex: Female

DRUGS (3)
  1. PREMARIN [Suspect]
     Indication: MENOPAUSAL SYMPTOMS
     Dosage: ORAL; (TIME FRAME FOR ALL HRT PRODUCTS
     Route: 048
     Dates: start: 19950101, end: 20020101
  2. MEDROXYPROGESTERONE [Suspect]
     Indication: MENOPAUSAL SYMPTOMS
     Dosage: ORAL; (1995 TO 2002)TIME FRAME FOR ALL HRT PRODUCTS
     Route: 048
     Dates: start: 19950101, end: 20050101
  3. PROVERA [Suspect]
     Indication: MENOPAUSAL SYMPTOMS
     Dosage: ORAL
     Route: 048
     Dates: start: 19950101, end: 20020101

REACTIONS (1)
  - BREAST CANCER [None]
